FAERS Safety Report 6638882-5 (Version None)
Quarter: 2010Q1

REPORT INFORMATION
  Report Type: 
  Country: None (occurrence: None)
  Receive Date: 20100316
  Receipt Date: 20100316
  Transmission Date: 20100710
  Serious: Yes (Life-Threatening)
  Sender: FDA-Public Use
  Company Number: None

PATIENT
  Age: 26 Year
  Sex: Female
  Weight: 100 kg

DRUGS (1)
  1. ZOLPIDEM [Suspect]
     Indication: INSOMNIA
     Dosage: 10MG QHS PRN PO
     Route: 048
     Dates: start: 20091001, end: 20091001

REACTIONS (2)
  - ANGIOEDEMA [None]
  - CARDIO-RESPIRATORY ARREST [None]
